FAERS Safety Report 19002576 (Version 1)
Quarter: 2021Q1

REPORT INFORMATION
  Report Type: Spontaneous
  Country: US (occurrence: US)
  Receive Date: 20210312
  Receipt Date: 20210312
  Transmission Date: 20210420
  Serious: No
  Sender: FDA-Public Use
  Company Number: US-ALLERGAN-2006909US

PATIENT
  Sex: Female
  Weight: 89.81 kg

DRUGS (3)
  1. ESTRACE [Suspect]
     Active Substance: ESTRADIOL
     Indication: HOT FLUSH
  2. CLONIDINE. [Suspect]
     Active Substance: CLONIDINE
     Indication: HOT FLUSH
  3. PROGESTERONE. [Concomitant]
     Active Substance: PROGESTERONE

REACTIONS (1)
  - Therapeutic response decreased [Unknown]
